FAERS Safety Report 8324836-X (Version None)
Quarter: 2012Q2

REPORT INFORMATION
  Report Type: 
  Country: None (occurrence: None)
  Receive Date: 20120501
  Receipt Date: 20120425
  Transmission Date: 20120825
  Serious: No
  Sender: FDA-Public Use
  Company Number: US-B.I. PHARMACEUTICALS,INC./RIDGEFIELD-2012-BP-09516BP

PATIENT
  Sex: Male

DRUGS (2)
  1. COUMADIN [Concomitant]
  2. TRADJENTA [Suspect]
     Dosage: 5 MG
     Route: 048

REACTIONS (1)
  - RECTAL HAEMORRHAGE [None]
